FAERS Safety Report 8190769-5 (Version None)
Quarter: 2012Q1

REPORT INFORMATION
  Report Type: 
  Country: None (occurrence: None)
  Receive Date: 20120305
  Receipt Date: 20120222
  Transmission Date: 20120608
  Serious: Yes (Other)
  Sender: FDA-Public Use
  Company Number: HR-1190735

PATIENT
  Age: 78 Year
  Sex: Male

DRUGS (4)
  1. VISTAGAN EYE DROPS (VISTAGAN LIQUIFILM) (NOT SPECIFIED) [Suspect]
     Indication: GLAUCOMA
     Dosage: (1 GTT QID OPHTHALMIC)
     Route: 047
     Dates: start: 20091201, end: 20100421
  2. BETOPTIC [Suspect]
     Indication: GLAUCOMA
     Dosage: (1 GTT QID OPHTHALMIC)
     Route: 047
     Dates: start: 20091201, end: 20100421
  3. LUMIGAN [Concomitant]
  4. REFRESH-CONTACTS [Concomitant]

REACTIONS (4)
  - EXTRASYSTOLES [None]
  - CARDIAC FAILURE [None]
  - ARRHYTHMIA [None]
  - DRUG INTERACTION [None]
